FAERS Safety Report 4426776-5 (Version None)
Quarter: 2004Q3

REPORT INFORMATION
  Report Type: 
  Country: None (occurrence: None)
  Receive Date: 20040816
  Receipt Date: 20040806
  Transmission Date: 20050211
  Serious: Yes (Other)
  Sender: FDA-Public Use
  Company Number: JP-JNJFOC-20040402355

PATIENT
  Age: 51 Year
  Sex: Male

DRUGS (3)
  1. LEUSTATIN [Suspect]
     Route: 041
  2. LEUSTATIN [Suspect]
     Indication: NON-HODGKIN'S LYMPHOMA
     Route: 041
  3. RITUXIMAB [Suspect]
     Indication: NON-HODGKIN'S LYMPHOMA

REACTIONS (4)
  - DRUG ERUPTION [None]
  - HAEMOLYTIC ANAEMIA [None]
  - SEPSIS [None]
  - WHITE BLOOD CELL COUNT DECREASED [None]
